FAERS Safety Report 8410301-8 (Version None)
Quarter: 2012Q2

REPORT INFORMATION
  Report Type: 
  Country: None (occurrence: None)
  Receive Date: 20120529
  Receipt Date: 20120514
  Transmission Date: 20120825
  Serious: Yes (Hospitalization)
  Sender: FDA-Public Use
  Company Number: ADR-2012209045

PATIENT
  Age: 71 Year
  Sex: Female
  Weight: 52.6173 kg

DRUGS (11)
  1. PENICILLIN G BENZATHINE [Concomitant]
  2. AMOXICILLIN [Concomitant]
  3. VAGIFEM [Concomitant]
  4. TERBINAFINE HCL [Suspect]
     Indication: ONYCHOMYCOSIS
     Dosage: 250 MG, OD, ORAL
     Route: 048
     Dates: start: 20120313, end: 20120411
  5. LASIX [Concomitant]
  6. FEXOFENADINE HCL [Concomitant]
  7. POTASSIUM [Concomitant]
  8. PREMPRO [Concomitant]
  9. FLONASE [Concomitant]
  10. OMEPRAZOLE [Concomitant]
  11. OXYBUTYNIN CHLORIDE [Concomitant]

REACTIONS (8)
  - PAIN [None]
  - VOMITING [None]
  - CHILLS [None]
  - MALAISE [None]
  - INFLUENZA [None]
  - LIVER FUNCTION TEST ABNORMAL [None]
  - ABDOMINAL PAIN [None]
  - NAUSEA [None]
